FAERS Safety Report 7347689-5 (Version None)
Quarter: 2011Q1

REPORT INFORMATION
  Report Type: 
  Country: None (occurrence: None)
  Receive Date: 20110311
  Receipt Date: 20110308
  Transmission Date: 20110831
  Serious: Yes (Hospitalization)
  Sender: FDA-Public Use
  Company Number: B0699740A

PATIENT
  Age: 47 Year
  Sex: Male
  Weight: 106.8 kg

DRUGS (10)
  1. AVANDAMET [Suspect]
     Route: 048
     Dates: start: 20040527, end: 20050505
  2. AMARYL [Concomitant]
  3. METOPROLOL [Concomitant]
  4. AVANDIA [Suspect]
     Dosage: 4MG PER DAY
     Route: 048
     Dates: start: 20031104, end: 20040527
  5. LAMISIL [Concomitant]
  6. LIPITOR [Concomitant]
  7. EFFEXOR [Concomitant]
  8. ZANTAC [Concomitant]
  9. VYTORIN [Concomitant]
  10. AMBIEN [Concomitant]

REACTIONS (3)
  - MYOCARDIAL ISCHAEMIA [None]
  - CORONARY ARTERY DISEASE [None]
  - ANGINA UNSTABLE [None]
